FAERS Safety Report 9118371 (Version 1)
Quarter: 2013Q1

REPORT INFORMATION
  Report Type: Spontaneous
  Country: IN (occurrence: None)
  Receive Date: 20130128
  Receipt Date: 20130128
  Transmission Date: 20140127
  Serious: Yes (Other)
  Sender: FDA-Public Use
  Company Number: UCM201301-000002

PATIENT
  Age: 12 Year
  Sex: Male

DRUGS (2)
  1. LAMOTRIGINE (LAMOTRIGINE) (LAMOTRIGINE) [Suspect]
  2. SODIUM VALPROATE [Concomitant]

REACTIONS (3)
  - Drug reaction with eosinophilia and systemic symptoms [None]
  - Heart rate increased [None]
  - Angioedema [None]
